FAERS Safety Report 8013350-7 (Version None)
Quarter: 2011Q4

REPORT INFORMATION
  Report Type: 
  Country: None (occurrence: None)
  Receive Date: 20111229
  Receipt Date: 20111227
  Transmission Date: 20120403
  Serious: Yes (Death)
  Sender: FDA-Public Use
  Company Number: PHEH2011US012586

PATIENT
  Sex: Female

DRUGS (11)
  1. PHYSICAL THERAPY [Concomitant]
     Dosage: UNK UKN, UNK
  2. GILENYA [Suspect]
     Route: 048
  3. TYSABRI [Suspect]
     Dosage: UNK UKN, UNK
  4. SINGULAIR [Suspect]
     Dosage: 10 MG, QD
  5. ACETAMINOPHEN AND HYDROCODONE BITARTRATE [Suspect]
     Indication: PAIN
     Dosage: 10/500 MG
  6. DIAZEPAM [Suspect]
     Dosage: 10 MG, BID
  7. ZANAFLEX [Suspect]
     Indication: MUSCLE RELAXANT THERAPY
  8. BACLOFEN [Suspect]
     Dosage: UNK UKN, UNK
  9. AMPHETAMINE AND DEXTROAMPHETAMINE SALTS [Suspect]
     Dosage: 10 MG, BID
  10. GABAPENTIN [Suspect]
     Dosage: 300 MG, QID
     Route: 048
  11. CITALOPRAM HYDROBROMIDE [Suspect]
     Indication: DEPRESSION
     Dosage: 20 MG, UNK

REACTIONS (4)
  - FALL [None]
  - ASTHENIA [None]
  - MOBILITY DECREASED [None]
  - DEATH [None]
